FAERS Safety Report 6834861-3 (Version None)
Quarter: 2010Q3

REPORT INFORMATION
  Report Type: 
  Country: None (occurrence: None)
  Receive Date: 20100712
  Receipt Date: 20070705
  Transmission Date: 20110219
  Serious: Yes (Other)
  Sender: FDA-Public Use
  Company Number: US-PFIZER INC-2007031171

PATIENT
  Sex: Female
  Weight: 50.8 kg

DRUGS (5)
  1. CHANTIX [Suspect]
     Indication: SMOKING CESSATION THERAPY
     Dates: start: 20070301
  2. PREDNISOLONE [Suspect]
  3. ALL OTHER THERAPEUTIC PRODUCTS [Suspect]
  4. THEOPHYLLINE [Concomitant]
  5. ZOCOR [Concomitant]

REACTIONS (7)
  - AGGRESSION [None]
  - BLOOD GLUCOSE FLUCTUATION [None]
  - DYSGEUSIA [None]
  - HEADACHE [None]
  - MENTAL STATUS CHANGES [None]
  - TYPE 2 DIABETES MELLITUS [None]
  - WEIGHT INCREASED [None]
